FAERS Safety Report 16613600 (Version 1)
Quarter: 2019Q3

REPORT INFORMATION
  Report Type: Spontaneous
  Country: US (occurrence: US)
  Receive Date: 20190722
  Receipt Date: 20190722
  Transmission Date: 20191004
  Serious: No
  Sender: FDA-Public Use
  Company Number: None

PATIENT
  Age: 62 Year
  Sex: Female
  Weight: 60.75 kg

DRUGS (8)
  1. BUPRENORPHINE TRANSDERMAL SYSTEM [Suspect]
     Active Substance: BUPRENORPHINE
     Indication: PAIN
     Dosage: ?          QUANTITY:1 PATCH(ES);OTHER FREQUENCY:WEEKLY;?
     Route: 062
     Dates: start: 20190110
  2. MULTI VITAMINS [Concomitant]
     Active Substance: VITAMINS
  3. FISH OIL [Concomitant]
     Active Substance: FISH OIL
  4. LISINOPRIL HTZ [Concomitant]
     Active Substance: HYDROCHLOROTHIAZIDE\LISINOPRIL
  5. COMP HYDROCORTISONE [Concomitant]
  6. LEVOTHROYOXIN [Concomitant]
  7. COMP PREG/DHEA [Concomitant]
  8. CBD OIL [Concomitant]
     Active Substance: CANNABIDIOL\HERBALS

REACTIONS (1)
  - Application site rash [None]

NARRATIVE: CASE EVENT DATE: 20190722
